FAERS Safety Report 8824725 (Version 1)
Quarter: 2012Q4

REPORT INFORMATION
  Report Type: 
  Country: US (occurrence: US)
  Receive Date: 20121004
  Receipt Date: 20121004
  Transmission Date: 20130627
  Serious: Yes (Other)
  Sender: FDA-Public Use
  Company Number: US-PFIZER INC-2012245056

PATIENT
  Age: 79 Year
  Sex: Female

DRUGS (4)
  1. ATENOLOL [Suspect]
     Dosage: UNk
     Route: 048
  2. ATACAND [Suspect]
     Dosage: Twice a day if needed
     Route: 048
  3. CRESTOR [Suspect]
     Dosage: UNK
     Route: 048
  4. NEXIUM [Concomitant]
     Dosage: UNK
     Route: 048

REACTIONS (5)
  - Cataract [Unknown]
  - Malaise [Unknown]
  - Nausea [Unknown]
  - Abdominal pain upper [Unknown]
  - Visual impairment [Unknown]
